FAERS Safety Report 6244458-4 (Version None)
Quarter: 2009Q2

REPORT INFORMATION
  Report Type: 
  Country: None (occurrence: None)
  Receive Date: 20090623
  Receipt Date: 20090623
  Transmission Date: 20091009
  Serious: Yes (Hospitalization)
  Sender: FDA-Public Use
  Company Number: None

PATIENT
  Age: 78 Year
  Sex: Male

DRUGS (1)
  1. TERAZOSIN HCL [Suspect]
     Indication: PROSTATIC DISORDER
     Dosage: 10 MG AT BEDTIME PO
     Route: 048
     Dates: start: 20070226, end: 20090408

REACTIONS (1)
  - ORTHOSTATIC HYPOTENSION [None]
